FAERS Safety Report 5925436-9 (Version None)
Quarter: 2008Q4

REPORT INFORMATION
  Report Type: 
  Country: None (occurrence: None)
  Receive Date: 20081021
  Receipt Date: 20081014
  Transmission Date: 20090506
  Serious: Yes (Hospitalization, Other)
  Sender: FDA-Public Use
  Company Number: US-MERCK-0810USA01717

PATIENT
  Age: 56 Year
  Sex: Female

DRUGS (12)
  1. JANUMET [Suspect]
     Indication: TYPE 2 DIABETES MELLITUS
     Route: 048
     Dates: start: 20070801, end: 20080901
  2. JANUMET [Suspect]
     Route: 048
     Dates: start: 20080901
  3. LEXAPRO [Concomitant]
     Route: 065
  4. SYNTHROID [Concomitant]
     Route: 065
  5. FLOMAX [Concomitant]
     Route: 065
  6. DETROL LA [Concomitant]
     Route: 065
  7. PREVACID [Concomitant]
     Route: 065
  8. LASIX [Concomitant]
     Route: 065
  9. [THERAPY UNSPECIFIED] [Concomitant]
     Route: 065
  10. ENALAPRIL MALEATE [Concomitant]
     Route: 065
  11. TRICOR [Concomitant]
     Route: 065
  12. NATALIZUMAB [Suspect]
     Indication: MULTIPLE SCLEROSIS
     Route: 042
     Dates: start: 20070801

REACTIONS (2)
  - DIABETES MELLITUS INADEQUATE CONTROL [None]
  - PANCREATITIS [None]
